FAERS Safety Report 9559144 (Version 3)
Quarter: 2014Q1

REPORT INFORMATION
  Report Type: Spontaneous
  Country: JP (occurrence: JP)
  Receive Date: 20130927
  Receipt Date: 20140318
  Transmission Date: 20141002
  Serious: Yes (Hospitalization)
  Sender: FDA-Public Use
  Company Number: JP-AMGEN-JPNSP2013067581

PATIENT
  Age: 57 Year
  Sex: Male
  Weight: 63 kg

DRUGS (9)
  1. MIMPARA [Suspect]
     Indication: HYPERPARATHYROIDISM SECONDARY
     Dosage: 25 MG, QD
     Route: 048
     Dates: start: 20130802, end: 20130814
  2. AMITIZA [Suspect]
     Indication: CONSTIPATION
     Dosage: 24 MUG, QD
     Route: 048
     Dates: start: 20130417, end: 20130814
  3. KIKLIN [Suspect]
     Indication: HYPERPHOSPHATAEMIA
     Dosage: 750 MG, TID
     Route: 048
     Dates: start: 20130412, end: 20130814
  4. LASIX                              /00032601/ [Concomitant]
     Indication: RENAL FAILURE
     Dosage: 40 MG, QD
     Route: 048
  5. PURSENNID                          /00142207/ [Concomitant]
     Indication: CONSTIPATION
     Dosage: 36 MG, QD
     Route: 048
  6. OLMETEC [Concomitant]
     Indication: HYPERTENSION
     Dosage: 20 MG, QD
     Route: 048
  7. AMLODIN [Concomitant]
     Indication: HYPERTENSION
     Dosage: 10 MG, BID
     Route: 048
  8. VEMAS [Concomitant]
     Indication: CONSTIPATION
     Dosage: UNK, QD
     Route: 048
  9. ALESION [Concomitant]
     Indication: PRURITUS
     Dosage: 20 MG, QD
     Route: 048

REACTIONS (3)
  - Acute generalised exanthematous pustulosis [Recovered/Resolved]
  - Blood pressure decreased [Recovered/Resolved]
  - Rash [Recovered/Resolved]
